FAERS Safety Report 8164681-1 (Version None)
Quarter: 2012Q1

REPORT INFORMATION
  Report Type: 
  Country: None (occurrence: None)
  Receive Date: 20120227
  Receipt Date: 20100112
  Transmission Date: 20120608
  Serious: No
  Sender: FDA-Public Use
  Company Number: US-BIOGENIDEC-2010BI001454

PATIENT
  Age: 42 Year
  Sex: Female

DRUGS (3)
  1. TYSABRI [Suspect]
     Route: 042
     Dates: start: 20120118
  2. TYSABRI [Suspect]
     Route: 042
     Dates: start: 20091203, end: 20100108
  3. TYSABRI [Suspect]
     Indication: MULTIPLE SCLEROSIS
     Route: 042
     Dates: start: 20071016, end: 20081201

REACTIONS (4)
  - ADVERSE DRUG REACTION [None]
  - INFUSION RELATED REACTION [None]
  - URTICARIA [None]
  - ADVERSE REACTION [None]
